FAERS Safety Report 9704448 (Version 1)
Quarter: 2013Q4

REPORT INFORMATION
  Report Type: Spontaneous
  Country: US (occurrence: US)
  Receive Date: 20131122
  Receipt Date: 20131122
  Transmission Date: 20140711
  Serious: Yes (Hospitalization, Other)
  Sender: FDA-Public Use
  Company Number: PHHY2013US131760

PATIENT
  Age: 58 Year
  Sex: Male

DRUGS (6)
  1. INTERLEUKIN-2 [Suspect]
     Indication: RENAL CELL CARCINOMA
     Dosage: 44.5 MIU, Q8H
     Route: 042
     Dates: start: 20130910, end: 20130925
  2. HYDROXYCHLOROQUINE SULFATE [Suspect]
     Indication: RENAL CELL CARCINOMA
     Dosage: 600 MG, BID
     Route: 048
     Dates: start: 20130827, end: 20131023
  3. NEXIUM//ESOMEPRAZOLE MAGNESIUM [Concomitant]
     Indication: GASTROOESOPHAGEAL REFLUX DISEASE
     Dosage: 40 MG, DAILY
  4. ESTAZOLAM [Concomitant]
     Dosage: 1 MG, AT BEDTIME
  5. HCQ [Concomitant]
     Dosage: 600 MG, BID
  6. SYNTHROID [Concomitant]
     Indication: HYPOTHYROIDISM
     Dosage: 150 UG,DAILY

REACTIONS (5)
  - Renal cell carcinoma [Unknown]
  - Malignant neoplasm progression [Unknown]
  - Chromaturia [Unknown]
  - Faeces discoloured [Unknown]
  - Bile duct stenosis [Unknown]
